FAERS Safety Report 21553080 (Version 2)
Quarter: 2022Q4

REPORT INFORMATION
  Report Type: Spontaneous
  Country: CN (occurrence: CN)
  Receive Date: 20221104
  Receipt Date: 20221110
  Transmission Date: 20230113
  Serious: Yes (Other)
  Sender: FDA-Public Use
  Company Number: CN-JNJFOC-20221103865

PATIENT
  Age: 5 Year
  Sex: Male
  Weight: 15 kg

DRUGS (10)
  1. MOTRIN INFANTS [Suspect]
     Active Substance: IBUPROFEN
     Indication: Tonsillitis
     Dosage: 15 ML 1 BOTTLE
     Route: 048
     Dates: start: 20221022, end: 20221024
  2. DESLORATADINE [Suspect]
     Active Substance: DESLORATADINE
     Indication: Tonsillitis
     Route: 048
     Dates: start: 20221022, end: 20221026
  3. MONTELUKAST SODIUM [Suspect]
     Active Substance: MONTELUKAST SODIUM
     Indication: Tonsillitis
     Route: 048
     Dates: start: 20221022, end: 20221024
  4. ACETAMINOPHEN\CHLORPHENIRAMINE MALEATE\PSEUDOEPHEDRINE HYDROCHLORIDE [Suspect]
     Active Substance: ACETAMINOPHEN\CHLORPHENIRAMINE MALEATE\PSEUDOEPHEDRINE HYDROCHLORIDE
     Indication: Tonsillitis
     Dosage: 100 ML 1 BOTTLE
     Route: 048
     Dates: start: 20221022, end: 20221028
  5. ERYTHROMYCIN CYCLOCARBONATE [Suspect]
     Active Substance: ERYTHROMYCIN CYCLOCARBONATE
     Indication: Tonsillitis
     Route: 048
     Dates: start: 20221022, end: 20221025
  6. CALCIUM GLUCONATE [Suspect]
     Active Substance: CALCIUM GLUCONATE
     Indication: Tonsillitis
     Dosage: 0.5G 18 TABLETS
     Route: 048
  7. VITAMIN C [Suspect]
     Active Substance: ASCORBIC ACID
     Indication: Tonsillitis
     Route: 048
  8. KETOTIFEN [Suspect]
     Active Substance: KETOTIFEN
     Indication: Tonsillitis
     Dosage: 1 MG*6 TABLETS
     Route: 048
  9. LORATADINE [Suspect]
     Active Substance: LORATADINE
     Indication: Tonsillitis
     Route: 048
  10. MOMETASONE FUROATE [Concomitant]
     Active Substance: MOMETASONE FUROATE
     Indication: Tonsillitis
     Dosage: 50 G 1  BOTTLE    1 SPRAY/TIME
     Route: 045
     Dates: start: 20221022, end: 20221031

REACTIONS (3)
  - Pharyngeal erythema [Not Recovered/Not Resolved]
  - Erythema [Not Recovered/Not Resolved]
  - Pruritus [Not Recovered/Not Resolved]

NARRATIVE: CASE EVENT DATE: 20221023
